FAERS Safety Report 21685552 (Version 2)
Quarter: 2022Q4

REPORT INFORMATION
  Report Type: Spontaneous
  Country: US (occurrence: US)
  Receive Date: 20221206
  Receipt Date: 20221207
  Transmission Date: 20230112
  Serious: No
  Sender: FDA-Public Use
  Company Number: US-BRISTOL-MYERS SQUIBB COMPANY-2022-148275

PATIENT
  Age: 89 Year
  Sex: Female

DRUGS (1)
  1. REVLIMID [Suspect]
     Active Substance: LENALIDOMIDE
     Indication: Acute myeloid leukaemia
     Dosage: FREQ: TAKE 1 CAPSULE DAILY FOR 21 DAYS
     Route: 048
     Dates: start: 20221013

REACTIONS (5)
  - Fatigue [Unknown]
  - Malaise [Unknown]
  - Pain [Unknown]
  - Platelet count decreased [Recovered/Resolved]
  - Ageusia [Unknown]
